FAERS Safety Report 6285494-1 (Version None)
Quarter: 2009Q3

REPORT INFORMATION
  Report Type: 
  Country: None (occurrence: None)
  Receive Date: 20090727
  Receipt Date: 20090714
  Transmission Date: 20100115
  Serious: Yes (Other)
  Sender: FDA-Public Use
  Company Number: US-BAYER-200912165BCC

PATIENT
  Sex: Female
  Weight: 73 kg

DRUGS (3)
  1. ASPIRIN [Suspect]
     Indication: HEADACHE
     Route: 048
     Dates: start: 20080101, end: 20090101
  2. ASPIRIN [Suspect]
     Dosage: CONSUMER STARTED TAKING 4 TO 6 TABLETS DAILY
     Route: 048
     Dates: start: 20090101, end: 20090713
  3. ASPIRIN [Concomitant]
     Indication: PROPHYLAXIS

REACTIONS (2)
  - DEAFNESS UNILATERAL [None]
  - TINNITUS [None]
